FAERS Safety Report 23887704 (Version 1)
Quarter: 2024Q2

REPORT INFORMATION
  Report Type: Spontaneous
  Country: US (occurrence: US)
  Receive Date: 20240523
  Receipt Date: 20240523
  Transmission Date: 20240716
  Serious: Yes (Hospitalization, Other)
  Sender: FDA-Public Use
  Company Number: US-SPECGX-T202401154

PATIENT
  Age: 37 Year
  Sex: Female

DRUGS (4)
  1. METHADONE [Suspect]
     Active Substance: METHADONE HYDROCHLORIDE
     Indication: Product used for unknown indication
     Dosage: UNK
     Route: 065
  2. AMITRIPTYLINE [Suspect]
     Active Substance: AMITRIPTYLINE
     Indication: Product used for unknown indication
     Dosage: 150 MILLIGRAM (3 MONTH SUPPLY)
     Route: 065
  3. ALPRAZOLAM [Suspect]
     Active Substance: ALPRAZOLAM
     Indication: Product used for unknown indication
     Dosage: UNK
     Route: 065
  4. ZOLPIDEM [Suspect]
     Active Substance: ZOLPIDEM TARTRATE
     Indication: Product used for unknown indication
     Dosage: UNK
     Route: 065

REACTIONS (11)
  - Bezoar [Unknown]
  - Suicide attempt [Unknown]
  - Ventricular dysfunction [Unknown]
  - Electrocardiogram QRS complex prolonged [Recovering/Resolving]
  - Depressed level of consciousness [Unknown]
  - Overdose [Unknown]
  - Hypotension [Unknown]
  - Seizure [Unknown]
  - Constipation [Recovering/Resolving]
  - Toxicity to various agents [Unknown]
  - Endotracheal intubation [Unknown]
